FAERS Safety Report 22654121 (Version 1)
Quarter: 2023Q2

REPORT INFORMATION
  Report Type: Spontaneous
  Country: US (occurrence: US)
  Receive Date: 20230629
  Receipt Date: 20230629
  Transmission Date: 20230722
  Serious: Yes (Life-Threatening, Hospitalization, Other)
  Sender: FDA-Public Use
  Company Number: US-TORRENT-00012721

PATIENT
  Age: 72 Year
  Sex: Female

DRUGS (2)
  1. CLOPIDOGREL [Suspect]
     Active Substance: CLOPIDOGREL BISULFATE
     Indication: Product used for unknown indication
     Dosage: UNKNOWN
     Route: 065
  2. HEPARIN [Suspect]
     Active Substance: HEPARIN SODIUM
     Indication: Peripheral artery bypass
     Dosage: 6000 UNITS TOTAL
     Route: 042

REACTIONS (3)
  - Spinal epidural haematoma [Recovered/Resolved]
  - Condition aggravated [Recovered/Resolved]
  - Hypoxia [Recovered/Resolved]
